FAERS Safety Report 26149153 (Version 1)
Quarter: 2025Q4

REPORT INFORMATION
  Report Type: Spontaneous
  Country: CN (occurrence: CN)
  Receive Date: 20251212
  Receipt Date: 20251212
  Transmission Date: 20260118
  Serious: Yes (Other)
  Sender: GLAXOSMITHKLINE
  Company Number: CN-GSK-CN2025CHI155851

PATIENT
  Age: 15 Year
  Sex: Female
  Weight: 48 kg

DRUGS (6)
  1. LAMICTAL [Suspect]
     Active Substance: LAMOTRIGINE
     Indication: Affective disorder
     Dosage: 50 MG, QD
  2. QUETIAPINE [Concomitant]
     Active Substance: QUETIAPINE
     Indication: Affective disorder
     Dosage: 0.3 G, QD
  3. QUETIAPINE [Concomitant]
     Active Substance: QUETIAPINE
     Indication: Sleep disorder
     Dosage: 0.1 G, QD
  4. QUETIAPINE [Concomitant]
     Active Substance: QUETIAPINE
     Indication: Liver disorder
     Dosage: 0.05 G, QD
  5. HERBALS\DIAMMONIUM GLYCYRRHIZINATE [Concomitant]
     Active Substance: HERBALS\DIAMMONIUM GLYCYRRHIZINATE
     Indication: Liver disorder
     Dosage: UNK
  6. SILYBIN [Concomitant]
     Indication: Liver disorder
     Dosage: UNK

REACTIONS (7)
  - Pyrexia [Recovering/Resolving]
  - Pruritus [Recovering/Resolving]
  - Rash erythematous [Recovering/Resolving]
  - Hepatic function abnormal [Recovering/Resolving]
  - Initial insomnia [Unknown]
  - Affect lability [Not Recovered/Not Resolved]
  - Anger [Not Recovered/Not Resolved]

NARRATIVE: CASE EVENT DATE: 20251001
